FAERS Safety Report 7056398-1 (Version None)
Quarter: 2010Q4

REPORT INFORMATION
  Report Type: 
  Country: None (occurrence: None)
  Receive Date: 20101018
  Receipt Date: 20101005
  Transmission Date: 20110411
  Serious: Yes (Other)
  Sender: FDA-Public Use
  Company Number: 2010AP002134

PATIENT
  Age: 75 Year
  Sex: Female

DRUGS (2)
  1. ONDANSETRON HYDROCHLORIDE [Suspect]
     Indication: NAUSEA
     Dosage: 8 MG;TID, PO
     Route: 048
  2. MORPHINE [Concomitant]

REACTIONS (3)
  - DEPRESSED LEVEL OF CONSCIOUSNESS [None]
  - DRUG INTERACTION [None]
  - SOMNOLENCE [None]
